FAERS Safety Report 4323693-6 (Version None)
Quarter: 2004Q1

REPORT INFORMATION
  Report Type: 
  Country: None (occurrence: None)
  Receive Date: 20040324
  Receipt Date: 20040324
  Transmission Date: 20041129
  Serious: Yes (Other)
  Sender: FDA-Public Use
  Company Number: None

PATIENT
  Age: 15 Year
  Sex: Female
  Weight: 61.2356 kg

DRUGS (2)
  1. CORICIDIN D (CHLORPHENIRAMINE/PSEUDOEPHEDRINE/ACETAM TABLETS [Suspect]
     Indication: SUICIDE ATTEMPT
     Dosage: ORAL
     Route: 048
  2. DEXEDRINE [Suspect]
     Indication: SUICIDE ATTEMPT
     Dosage: ORAL
     Route: 048

REACTIONS (3)
  - CONVULSION [None]
  - SUICIDE ATTEMPT [None]
  - VOMITING [None]
